FAERS Safety Report 9294867 (Version 2)
Quarter: 2013Q3

REPORT INFORMATION
  Report Type: Report from Study
  Country: US (occurrence: US)
  Receive Date: 20130517
  Receipt Date: 20130801
  Transmission Date: 20140515
  Serious: Yes (Hospitalization)
  Sender: FDA-Public Use
  Company Number: US-ASTELLAS-2013US005069

PATIENT
  Age: 14 Year
  Sex: Female
  Weight: 54 kg

DRUGS (6)
  1. TACROLIMUS OINTMENT [Suspect]
     Indication: DERMATITIS ATOPIC
     Dosage: 0.1 %, UID/QD
     Route: 061
     Dates: start: 20070618
  2. DIFFERIN [Concomitant]
     Indication: ACNE
     Dosage: 0.3 %, UID/QD
     Route: 061
     Dates: start: 20120614
  3. NIZORAL [Concomitant]
     Indication: TINEA VERSICOLOUR
     Dosage: 2 %, PRN
     Route: 061
     Dates: start: 20121203
  4. ELOCON [Concomitant]
     Indication: DERMATITIS ATOPIC
     Dosage: UNK
     Route: 061
     Dates: start: 20051121
  5. CONCERTA [Concomitant]
     Indication: ATTENTION DEFICIT/HYPERACTIVITY DISORDER
     Dosage: UNK
     Route: 048
  6. SELENIUM SULFIDE [Concomitant]
     Indication: TINEA VERSICOLOUR
     Dosage: 2.5
     Route: 065

REACTIONS (2)
  - Off label use [Unknown]
  - Depression suicidal [Recovered/Resolved with Sequelae]
